FAERS Safety Report 21265753 (Version 6)
Quarter: 2022Q4

REPORT INFORMATION
  Report Type: Spontaneous
  Country: US (occurrence: US)
  Receive Date: 20220829
  Receipt Date: 20221207
  Transmission Date: 20230112
  Serious: No
  Sender: FDA-Public Use
  Company Number: US-PFIZER INC-PV202200050828

PATIENT
  Age: 77 Year
  Sex: Female
  Weight: 72.57 kg

DRUGS (6)
  1. IBRANCE [Suspect]
     Active Substance: PALBOCICLIB
     Indication: Breast cancer metastatic
     Dosage: 125 MG, 1X/DAY
     Dates: start: 202206, end: 202208
  2. IBRANCE [Suspect]
     Active Substance: PALBOCICLIB
     Dosage: UNK
     Dates: start: 202209
  3. IBRANCE [Suspect]
     Active Substance: PALBOCICLIB
     Dosage: 125 MG, CYCLIC(125MG 3 WEEKS ON AND ONE WEEK OFF)
     Dates: start: 202208, end: 20221101
  4. IBRANCE [Suspect]
     Active Substance: PALBOCICLIB
     Dosage: 100 MG
  5. KISQALI [Concomitant]
     Active Substance: RIBOCICLIB
     Dosage: UNK
  6. EXEMESTANE [Concomitant]
     Active Substance: EXEMESTANE
     Dosage: UNK

REACTIONS (12)
  - Musculoskeletal pain [Recovering/Resolving]
  - Stomatitis [Recovering/Resolving]
  - Headache [Recovering/Resolving]
  - Somnolence [Recovering/Resolving]
  - Dyspnoea [Recovering/Resolving]
  - Increased tendency to bruise [Recovering/Resolving]
  - Alopecia [Recovering/Resolving]
  - Back pain [Unknown]
  - Arthralgia [Unknown]
  - Therapeutic response unexpected [Unknown]
  - Renal pain [Recovered/Resolved]
  - Symptom recurrence [Unknown]

NARRATIVE: CASE EVENT DATE: 20220824
